FAERS Safety Report 8502688-2 (Version None)
Quarter: 2012Q3

REPORT INFORMATION
  Report Type: 
  Country: None (occurrence: None)
  Receive Date: 20120706
  Receipt Date: 20120706
  Transmission Date: 20120928
  Serious: Yes (Other)
  Sender: FDA-Public Use
  Company Number: None

PATIENT
  Age: 47 Year
  Sex: Female
  Weight: 61.2356 kg

DRUGS (1)
  1. AMPHETAMINE SULFATE [Suspect]
     Indication: ATTENTION DEFICIT/HYPERACTIVITY DISORDER
     Dosage: 10 MG ONE A DAY PO
     Route: 048
     Dates: start: 20120606, end: 20120630

REACTIONS (12)
  - WEIGHT INCREASED [None]
  - DIZZINESS [None]
  - PALPITATIONS [None]
  - NAUSEA [None]
  - FEAR [None]
  - FLUID RETENTION [None]
  - PRODUCT SUBSTITUTION ISSUE [None]
  - IRRITABILITY [None]
  - DISTURBANCE IN ATTENTION [None]
  - DEPRESSED MOOD [None]
  - SYNCOPE [None]
  - FATIGUE [None]
